FAERS Safety Report 5400791-7 (Version None)
Quarter: 2007Q3

REPORT INFORMATION
  Report Type: 
  Country: None (occurrence: None)
  Receive Date: 20070730
  Receipt Date: 20070718
  Transmission Date: 20080115
  Serious: Yes (Hospitalization)
  Sender: FDA-Public Use
  Company Number: FR-PFIZER INC-2007060749

PATIENT
  Sex: Male

DRUGS (11)
  1. DALACINE IV [Suspect]
     Indication: RESPIRATORY DISTRESS
     Route: 042
  2. VANCOMYCIN [Suspect]
     Indication: RESPIRATORY DISTRESS
     Route: 042
     Dates: start: 20070528, end: 20070702
  3. CIPROFLOXACIN HCL [Suspect]
     Indication: RESPIRATORY DISTRESS
  4. FORTUM [Suspect]
     Indication: RESPIRATORY DISTRESS
     Route: 042
     Dates: start: 20070617, end: 20070702
  5. ESIDRIX [Concomitant]
  6. LASIX [Concomitant]
  7. LOGIMAX [Concomitant]
  8. ATORVASTATIN CALCIUM [Concomitant]
  9. TRIATEC [Concomitant]
  10. ASPEGIC 325 [Concomitant]
  11. IRBESARTAN [Concomitant]

REACTIONS (2)
  - PLEURAL EFFUSION [None]
  - TONIC CONVULSION [None]
